FAERS Safety Report 7046331-0 (Version None)
Quarter: 2010Q4

REPORT INFORMATION
  Report Type: 
  Country: None (occurrence: None)
  Receive Date: 20101014
  Receipt Date: 20101004
  Transmission Date: 20110411
  Serious: Yes (Hospitalization, Other)
  Sender: FDA-Public Use
  Company Number: US-BAXTER-2010BH024988

PATIENT
  Age: 46 Year
  Sex: Male

DRUGS (1)
  1. DIANEAL [Suspect]
     Indication: PERITONEAL DIALYSIS
     Route: 033
     Dates: start: 20060714

REACTIONS (3)
  - CEREBROVASCULAR ACCIDENT [None]
  - PERITONITIS BACTERIAL [None]
  - TRANSIENT ISCHAEMIC ATTACK [None]
